FAERS Safety Report 25713191 (Version 1)
Quarter: 2025Q3

REPORT INFORMATION
  Report Type: Spontaneous
  Country: US (occurrence: NP)
  Receive Date: 20250822
  Receipt Date: 20250822
  Transmission Date: 20251021
  Serious: Yes (Hospitalization)
  Sender: Norvium Bioscience
  Company Number: US-Norvium Bioscience LLC-080520

PATIENT
  Age: 29 Year
  Sex: Female

DRUGS (5)
  1. ESCITALOPRAM OXALATE [Suspect]
     Active Substance: ESCITALOPRAM OXALATE
     Indication: Psychotic symptom
  2. OLANZAPINE [Suspect]
     Active Substance: OLANZAPINE
     Indication: Psychotic symptom
  3. MIRTAZAPINE [Suspect]
     Active Substance: MIRTAZAPINE
     Indication: Psychotic symptom
  4. ERGOCALCIFEROL [Concomitant]
     Active Substance: ERGOCALCIFEROL
     Indication: Product used for unknown indication
  5. ESCITALOPRAM OXALATE [Suspect]
     Active Substance: ESCITALOPRAM OXALATE
     Indication: Psychotic symptom
     Dosage: RESTARTED AND  INCREASED TO 20 MG DAILY

REACTIONS (4)
  - Blepharospasm [Recovering/Resolving]
  - Sedation complication [Unknown]
  - Insomnia [Unknown]
  - Treatment noncompliance [Unknown]
